FAERS Safety Report 8947511 (Version 1)
Quarter: 2012Q4

REPORT INFORMATION
  Report Type: 
  Country: MX (occurrence: MX)
  Receive Date: 20121205
  Receipt Date: 20121205
  Transmission Date: 20130627
  Serious: Yes (Death, Hospitalization)
  Sender: FDA-Public Use
  Company Number: MX-UCBSA-072258

PATIENT
  Age: 83 Year
  Sex: Female
  Weight: 70 kg

DRUGS (5)
  1. NUBRENZA [Suspect]
     Indication: PARKINSON^S DISEASE
     Dosage: 2 MG
     Route: 062
     Dates: start: 20111017
  2. NUBRENZA [Suspect]
     Indication: PARKINSON^S DISEASE
     Route: 062
     Dates: start: 2011, end: 2011
  3. NUBRENZA [Suspect]
     Indication: PARKINSON^S DISEASE
     Route: 062
     Dates: start: 20111128
  4. NUBRENZA [Suspect]
     Indication: PARKINSON^S DISEASE
     Route: 062
     Dates: end: 20121110
  5. AZILECT [Concomitant]
     Indication: PARKINSON^S DISEASE
     Route: 048
     Dates: start: 20090312, end: 20121110

REACTIONS (2)
  - Cardio-respiratory arrest [Fatal]
  - Intestinal infarction [Fatal]
